FAERS Safety Report 12932992 (Version 1)
Quarter: 2016Q4

REPORT INFORMATION
  Report Type: Spontaneous
  Country: US (occurrence: US)
  Receive Date: 20161111
  Receipt Date: 20161111
  Transmission Date: 20170207
  Serious: Yes (Other)
  Sender: FDA-Public Use
  Company Number: US-PFIZER INC-2016521237

PATIENT

DRUGS (1)
  1. GABAPENTIN. [Suspect]
     Active Substance: GABAPENTIN
     Dosage: UNK

REACTIONS (20)
  - Speech disorder [Recovered/Resolved]
  - Balance disorder [Recovered/Resolved]
  - Seizure [Recovered/Resolved]
  - Condition aggravated [Recovering/Resolving]
  - Dissociation [Recovered/Resolved]
  - Depression [Recovered/Resolved]
  - Amnesia [Recovered/Resolved]
  - Tremor [Recovered/Resolved]
  - Activities of daily living impaired [Recovered/Resolved]
  - Cognitive disorder [Recovering/Resolving]
  - Emotional disorder [Recovered/Resolved]
  - Fall [Recovered/Resolved]
  - Mental disorder [Recovered/Resolved]
  - General physical condition abnormal [Recovered/Resolved]
  - Dyskinesia [Recovered/Resolved]
  - Anxiety [Recovered/Resolved]
  - Pain [Recovering/Resolving]
  - Withdrawal syndrome [Recovered/Resolved]
  - Depressed level of consciousness [Recovered/Resolved]
  - Insomnia [Recovered/Resolved]
